FAERS Safety Report 5647706-4 (Version None)
Quarter: 2008Q1

REPORT INFORMATION
  Report Type: 
  Country: None (occurrence: None)
  Receive Date: 20080228
  Receipt Date: 20080222
  Transmission Date: 20080703
  Serious: Yes (Death, Hospitalization)
  Sender: FDA-Public Use
  Company Number: 163-21880-08011061

PATIENT
  Age: 57 Year
  Sex: Female

DRUGS (1)
  1. REVLIMID [Suspect]
     Indication: MULTIPLE MYELOMA
     Dosage: 10 MG, MON-FRI, ORAL
     Route: 048
     Dates: start: 20070101, end: 20080104

REACTIONS (7)
  - CONDITION AGGRAVATED [None]
  - HAEMOGLOBIN DECREASED [None]
  - IMMUNOSUPPRESSION [None]
  - LABORATORY TEST ABNORMAL [None]
  - MENINGITIS MENINGOCOCCAL [None]
  - MULTIPLE MYELOMA [None]
  - SINUSITIS [None]
